FAERS Safety Report 6569935-8 (Version None)
Quarter: 2010Q1

REPORT INFORMATION
  Report Type: 
  Country: None (occurrence: None)
  Receive Date: 20100202
  Receipt Date: 20100202
  Transmission Date: 20100710
  Serious: Yes (Hospitalization)
  Sender: FDA-Public Use
  Company Number: None

PATIENT
  Age: 48 Year
  Sex: Female
  Weight: 74.3899 kg

DRUGS (2)
  1. GADOLINIUM UNKNOWN UNKNOWN [Suspect]
     Indication: NUCLEAR MAGNETIC RESONANCE IMAGING
     Dates: start: 20100129, end: 20100129
  2. CENESTIN [Suspect]
     Indication: HORMONE REPLACEMENT THERAPY
     Dates: start: 20030221

REACTIONS (9)
  - ABDOMINAL PAIN [None]
  - CYSTITIS [None]
  - DYSURIA [None]
  - ERYTHEMA [None]
  - EXCORIATION [None]
  - RADIATION INJURY [None]
  - RENAL DISORDER [None]
  - RESIDUAL URINE [None]
  - URETERITIS [None]
